FAERS Safety Report 8033426-8 (Version None)
Quarter: 2012Q1

REPORT INFORMATION
  Report Type: 
  Country: None (occurrence: None)
  Receive Date: 20120110
  Receipt Date: 20120105
  Transmission Date: 20120608
  Serious: Yes (Other)
  Sender: FDA-Public Use
  Company Number: AR-ROCHE-GNE324762

PATIENT
  Sex: Female

DRUGS (1)
  1. LUCENTIS [Suspect]
     Indication: MACULOPATHY
     Dosage: 1 DF, 1/MONTH
     Route: 050
     Dates: start: 20110401

REACTIONS (3)
  - DRUG INEFFECTIVE [None]
  - SCOTOMA [None]
  - VISION BLURRED [None]
